FAERS Safety Report 13535327 (Version 2)
Quarter: 2017Q2

REPORT INFORMATION
  Report Type: Report from Study
  Country: MX (occurrence: MX)
  Receive Date: 20170511
  Receipt Date: 20170515
  Transmission Date: 20170830
  Serious: Yes (Other)
  Sender: FDA-Public Use
  Company Number: MX-UCBSA-2017017551

PATIENT
  Sex: Female
  Weight: 93 kg

DRUGS (10)
  1. SITAGLIPTIN [Concomitant]
     Active Substance: SITAGLIPTIN
     Indication: DIABETES MELLITUS
     Dosage: 100 MG, ONCE DAILY (QD)
     Dates: start: 2012
  2. DIOSMIN [Concomitant]
     Active Substance: DIOSMIN
     Indication: THROMBOSIS
     Dosage: 500 MG, 2X/DAY (BID)
     Dates: start: 2016
  3. INSULIN [Concomitant]
     Active Substance: INSULIN NOS
     Indication: DIABETES MELLITUS
     Dosage: 40 UI AT MORNING AND 38UI AT NIGHT
  4. DIVALPROEX SODIUM. [Concomitant]
     Active Substance: DIVALPROEX SODIUM
     Indication: PRODUCT USED FOR UNKNOWN INDICATION
     Dosage: 2 TABLETS AT MORNING, 1 TABLET AT AFTERNOON AND 2 TABLET AT NIGHT
  5. LEVETIRACETAM. [Suspect]
     Active Substance: LEVETIRACETAM
     Dosage: 1 G, 2X/DAY (BID)
     Route: 048
     Dates: start: 2012
  6. LEVETIRACETAM. [Suspect]
     Active Substance: LEVETIRACETAM
     Indication: EPILEPSY
     Dosage: 500 MG AT MORNING AND 1 G AT NIGHT
     Route: 048
     Dates: start: 2006
  7. SULODEXIDE [Concomitant]
     Active Substance: SULODEXIDE
     Indication: THROMBOSIS
     Dosage: 1 DF, 2X/DAY (BID)
  8. LEVETIRACETAM. [Suspect]
     Active Substance: LEVETIRACETAM
     Dosage: 1 G, 3X/DAY (TID)
     Route: 048
     Dates: start: 2010
  9. PHENOBARBITAL. [Suspect]
     Active Substance: PHENOBARBITAL
     Indication: PRODUCT USED FOR UNKNOWN INDICATION
     Dosage: UNK
     Dates: start: 2006, end: 2012
  10. DIAZEPAM. [Concomitant]
     Active Substance: DIAZEPAM
     Indication: PRODUCT USED FOR UNKNOWN INDICATION
     Dosage: UNK
     Dates: start: 2000, end: 200712

REACTIONS (8)
  - Thrombosis [Recovered/Resolved]
  - Somnolence [Unknown]
  - Change in seizure presentation [Unknown]
  - Treatment noncompliance [Unknown]
  - Off label use [Unknown]
  - Seizure [Recovered/Resolved]
  - Weight increased [Recovering/Resolving]
  - Diabetes mellitus [Recovered/Resolved]

NARRATIVE: CASE EVENT DATE: 2006
